FAERS Safety Report 9715754 (Version 2)
Quarter: 2013Q4

REPORT INFORMATION
  Report Type: Spontaneous
  Country: US (occurrence: US)
  Receive Date: 20131127
  Receipt Date: 20131203
  Transmission Date: 20140711
  Serious: Yes (Other)
  Sender: FDA-Public Use
  Company Number: US-ASTRAZENECA-2013SE86383

PATIENT
  Age: 1067 Month
  Sex: Female
  Weight: 56.7 kg

DRUGS (11)
  1. SEROQUEL XR [Suspect]
     Indication: PSYCHOTIC DISORDER
     Route: 048
     Dates: start: 20131101, end: 20131114
  2. SEROQUEL XR [Suspect]
     Indication: DEMENTIA ALZHEIMER^S TYPE
     Route: 048
     Dates: start: 20131101, end: 20131114
  3. SEROQUEL XR [Suspect]
     Indication: PSYCHOTIC DISORDER
     Route: 048
  4. SEROQUEL XR [Suspect]
     Indication: DEMENTIA ALZHEIMER^S TYPE
     Route: 048
  5. SEROQUEL XR [Suspect]
     Indication: PSYCHOTIC DISORDER
     Route: 048
     Dates: start: 20131115
  6. SEROQUEL XR [Suspect]
     Indication: DEMENTIA ALZHEIMER^S TYPE
     Route: 048
     Dates: start: 20131115
  7. CELEXA [Concomitant]
     Indication: DEMENTIA ALZHEIMER^S TYPE
     Route: 048
  8. CELEXA [Concomitant]
     Indication: AGGRESSION
     Route: 048
  9. LORTAB [Concomitant]
     Indication: BACK PAIN
     Dosage: 5/500 MG, PRN
     Route: 048
  10. XANAX [Concomitant]
     Indication: SLEEP DISORDER
     Route: 048
  11. ERYTHROMYCIN [Concomitant]
     Indication: ULCERATIVE KERATITIS
     Route: 048
     Dates: start: 20131121

REACTIONS (6)
  - Ulcerative keratitis [Not Recovered/Not Resolved]
  - Dry eye [Not Recovered/Not Resolved]
  - Agitation [Not Recovered/Not Resolved]
  - Blepharospasm [Recovered/Resolved]
  - Intentional drug misuse [Unknown]
  - Off label use [Not Recovered/Not Resolved]
